FAERS Safety Report 5775747-5 (Version None)
Quarter: 2008Q2

REPORT INFORMATION
  Report Type: 
  Country: None (occurrence: None)
  Receive Date: 20080617
  Receipt Date: 20080610
  Transmission Date: 20081010
  Serious: Yes (Other)
  Sender: FDA-Public Use
  Company Number: US-BOEHRINGER INGELHEIM GMBH, GERMANY-2008-BP-09055RO

PATIENT
  Age: 39 Year
  Sex: Female

DRUGS (4)
  1. DEXAMETHASONE TAB [Suspect]
     Indication: ADRENAL MASS
     Route: 048
  2. VASODILATORS [Concomitant]
     Indication: HYPERTENSION
     Route: 042
  3. B-BLOCKERS [Concomitant]
     Indication: HYPERTENSION
     Route: 042
  4. PHENOXYBENZAMINE [Concomitant]

REACTIONS (3)
  - HYPERTENSIVE CRISIS [None]
  - MYOCARDIAL ISCHAEMIA [None]
  - PHAEOCHROMOCYTOMA [None]
